FAERS Safety Report 16006575 (Version 1)
Quarter: 2019Q1

REPORT INFORMATION
  Report Type: Spontaneous
  Country: FR (occurrence: FR)
  Receive Date: 20190226
  Receipt Date: 20190226
  Transmission Date: 20190418
  Serious: Yes (Hospitalization)
  Sender: FDA-Public Use
  Company Number: FR-LUNDBECK-DKLU2060999

PATIENT
  Age: 53 Year
  Sex: Male

DRUGS (2)
  1. URBANYL [Suspect]
     Active Substance: CLOBAZAM
     Indication: POISONING DELIBERATE
     Dosage: OVERDOSE: 300 MG
     Route: 065
     Dates: start: 20190105, end: 20190105
  2. DEPAKINE [Suspect]
     Active Substance: VALPROATE SODIUM
     Indication: POISONING DELIBERATE
     Dosage: OVERDOSE: 15 GRAMS
     Route: 048
     Dates: start: 20190105, end: 20190105

REACTIONS (4)
  - Poisoning deliberate [Recovered/Resolved]
  - Hypotension [Recovered/Resolved]
  - Overdose [Recovered/Resolved]
  - Extrapyramidal disorder [Recovered/Resolved]

NARRATIVE: CASE EVENT DATE: 20190105
